FAERS Safety Report 14941229 (Version 2)
Quarter: 2018Q2

REPORT INFORMATION
  Report Type: Spontaneous
  Country: IT (occurrence: IT)
  Receive Date: 20180525
  Receipt Date: 20180619
  Transmission Date: 20180711
  Serious: Yes (Hospitalization, Other)
  Sender: FDA-Public Use
  Company Number: IT-BAUSCH-BL-2018-014928

PATIENT
  Age: 54 Year
  Sex: Female

DRUGS (1)
  1. DICLOFENAC [Suspect]
     Active Substance: DICLOFENAC
     Indication: MYALGIA
     Dosage: 1 DOSAGE FORM, AS NEEDED, PRN
     Route: 048
     Dates: start: 20121001, end: 20121007

REACTIONS (7)
  - Haematemesis [Recovering/Resolving]
  - Heart rate increased [Unknown]
  - Dyspepsia [Recovering/Resolving]
  - Overdose [Recovering/Resolving]
  - Blood pressure increased [Unknown]
  - Abdominal pain upper [Recovering/Resolving]
  - Chest pain [Unknown]

NARRATIVE: CASE EVENT DATE: 20121006
